FAERS Safety Report 25871520 (Version 1)
Quarter: 2025Q4

REPORT INFORMATION
  Report Type: Spontaneous
  Country: CA (occurrence: CA)
  Receive Date: 20251001
  Receipt Date: 20251001
  Transmission Date: 20260118
  Serious: Yes (Hospitalization, Disabling)
  Sender: EISAI
  Company Number: CA-Eisai-EC-2025-197529

PATIENT
  Age: 69 Year
  Sex: Female
  Weight: 75 kg

DRUGS (5)
  1. LENVIMA [Suspect]
     Active Substance: LENVATINIB
     Indication: Endometrial cancer
     Route: 048
  2. KEYTRUDA [Concomitant]
     Active Substance: PEMBROLIZUMAB
     Indication: Product used for unknown indication
     Dosage: DOSE AND FREQUENCY WERE UNKNOWN
     Route: 042
  3. COVERSYL A [Concomitant]
     Indication: Product used for unknown indication
     Dosage: DOSE AND FREQUENCY WERE UNKNOWN.
  4. NORVASC [Concomitant]
     Active Substance: AMLODIPINE BESYLATE
     Indication: Product used for unknown indication
     Dosage: DOSE AND FREQUENCY WERE UNKNOWN.
  5. SYNTHROID [Concomitant]
     Active Substance: LEVOTHYROXINE SODIUM
     Indication: Product used for unknown indication
     Dosage: DOSE AND FREQUENCY WERE UNKNOWN.

REACTIONS (1)
  - Cerebrovascular accident [Recovering/Resolving]
